FAERS Safety Report 20676220 (Version 1)
Quarter: 2022Q2

REPORT INFORMATION
  Report Type: Report from Study
  Country: US (occurrence: US)
  Receive Date: 20220405
  Receipt Date: 20220405
  Transmission Date: 20220720
  Serious: Yes (Hospitalization, Other)
  Sender: FDA-Public Use
  Company Number: US-TAKEDA-2022TUS021882

PATIENT
  Sex: Female
  Weight: 56.78 kg

DRUGS (4)
  1. TEDUGLUTIDE [Suspect]
     Active Substance: TEDUGLUTIDE
     Indication: Short-bowel syndrome
     Dosage: 0.284 MILLILITER, QD
     Route: 058
     Dates: start: 20170613
  2. TEDUGLUTIDE [Suspect]
     Active Substance: TEDUGLUTIDE
     Indication: Short-bowel syndrome
     Dosage: 0.284 MILLILITER, QD
     Route: 058
     Dates: start: 20170613
  3. TEDUGLUTIDE [Suspect]
     Active Substance: TEDUGLUTIDE
     Indication: Short-bowel syndrome
     Dosage: 0.284 MILLILITER, QD
     Route: 058
     Dates: start: 20170613
  4. TEDUGLUTIDE [Suspect]
     Active Substance: TEDUGLUTIDE
     Indication: Short-bowel syndrome
     Dosage: 0.284 MILLILITER, QD
     Route: 058
     Dates: start: 20170613

REACTIONS (1)
  - Neoplasm malignant [Unknown]
